FAERS Safety Report 22659146 (Version 1)
Quarter: 2023Q2

REPORT INFORMATION
  Report Type: Spontaneous
  Country: US (occurrence: None)
  Receive Date: 20230629
  Receipt Date: 20230629
  Transmission Date: 20230722
  Serious: No
  Sender: FDA-Public Use
  Company Number: None

PATIENT
  Age: 19 Year
  Sex: Male

DRUGS (1)
  1. SERTRALINE [Suspect]
     Active Substance: SERTRALINE HYDROCHLORIDE
     Dosage: FREQUENCY : DAILY;?
     Route: 048
     Dates: start: 20230627, end: 20230629

REACTIONS (5)
  - Malaise [None]
  - Pain [None]
  - Gastrooesophageal reflux disease [None]
  - Retching [None]
  - Hyperhidrosis [None]

NARRATIVE: CASE EVENT DATE: 20230627
